FAERS Safety Report 22085795 (Version 1)
Quarter: 2023Q1

REPORT INFORMATION
  Report Type: Spontaneous
  Country: US (occurrence: None)
  Receive Date: 20230310
  Receipt Date: 20230310
  Transmission Date: 20230417
  Serious: Yes (Hospitalization)
  Sender: FDA-Public Use
  Company Number: None

PATIENT
  Sex: Female

DRUGS (2)
  1. TORADOL [Suspect]
     Active Substance: KETOROLAC TROMETHAMINE
     Indication: Pain
     Dosage: FREQUENCY : TWICE A DAY;?
     Route: 048
  2. TORADOL [Suspect]
     Active Substance: KETOROLAC TROMETHAMINE
     Dosage: FREQUENCY : TWICE A DAY;?

REACTIONS (10)
  - Blood pressure diastolic increased [None]
  - Balance disorder [None]
  - Middle ear effusion [None]
  - Head discomfort [None]
  - Vision blurred [None]
  - Trismus [None]
  - Bruxism [None]
  - Tinnitus [None]
  - Tooth loss [None]
  - Hypersomnia [None]

NARRATIVE: CASE EVENT DATE: 20120101
